FAERS Safety Report 5745575-5 (Version None)
Quarter: 2008Q2

REPORT INFORMATION
  Report Type: 
  Country: None (occurrence: None)
  Receive Date: 20080519
  Receipt Date: 20080303
  Transmission Date: 20081010
  Serious: No
  Sender: FDA-Public Use
  Company Number: TPA2008A00221

PATIENT
  Age: 73 Year
  Sex: Male
  Weight: 87 kg

DRUGS (6)
  1. ROZEREM [Suspect]
     Indication: INSOMNIA
     Dosage: 8 MG, QHS, PER ORAL
     Route: 048
     Dates: start: 20080101, end: 20080101
  2. COREG (CARVDILOL) [Concomitant]
  3. LASIX [Concomitant]
  4. AMIODARONE HCL [Concomitant]
  5. INSULIN (INSULIN) [Concomitant]
  6. FISH OIL (FISH OIL) [Concomitant]

REACTIONS (2)
  - DRUG INTOLERANCE [None]
  - FEELING ABNORMAL [None]
